FAERS Safety Report 12410823 (Version 3)
Quarter: 2016Q2

REPORT INFORMATION
  Report Type: Spontaneous
  Country: US (occurrence: US)
  Receive Date: 20160527
  Receipt Date: 20160630
  Transmission Date: 20160815
  Serious: No
  Sender: FDA-Public Use
  Company Number: PHEH2016US013063

PATIENT
  Age: 78 Year
  Sex: Male
  Weight: 83.5 kg

DRUGS (2)
  1. SANDOSTATIN LAR DEPOT [Suspect]
     Active Substance: OCTREOTIDE ACETATE
     Indication: NEUROENDOCRINE TUMOUR
     Dosage: 30 MG, UNK
     Route: 030
  2. SANDOSTATIN LAR DEPOT [Suspect]
     Active Substance: OCTREOTIDE ACETATE
     Dosage: 60 MG, QW3 (EVERY 3 WEEKS)
     Route: 030
     Dates: start: 20140418

REACTIONS (3)
  - Syringe issue [Recovered/Resolved]
  - Inappropriate schedule of drug administration [Unknown]
  - Needle issue [Unknown]

NARRATIVE: CASE EVENT DATE: 20160523
